FAERS Safety Report 16540244 (Version 2)
Quarter: 2019Q3

REPORT INFORMATION
  Report Type: Spontaneous
  Country: US (occurrence: US)
  Receive Date: 20190708
  Receipt Date: 20190731
  Transmission Date: 20191004
  Serious: Yes (Hospitalization)
  Sender: FDA-Public Use
  Company Number: PHHY2019US151542

PATIENT
  Age: 22 Year
  Sex: Male

DRUGS (5)
  1. LEVOTHYROXINE. [Suspect]
     Active Substance: LEVOTHYROXINE
     Indication: SUPPLEMENTATION THERAPY
     Dosage: UNK
     Route: 048
  2. TAURINE [Suspect]
     Active Substance: TAURINE
     Indication: SUPPLEMENTATION THERAPY
     Dosage: UNK
     Route: 048
  3. DINITROPHENOL [Suspect]
     Active Substance: 2,4-DINITROPHENOL
     Indication: SUPPLEMENTATION THERAPY
     Dosage: UNK
     Route: 048
  4. HYDROXYZINE [Suspect]
     Active Substance: HYDROXYZINE HYDROCHLORIDE
     Indication: SUPPLEMENTATION THERAPY
     Dosage: UNK
     Route: 048
  5. CREATINE [Suspect]
     Active Substance: CREATINE
     Indication: SUPPLEMENTATION THERAPY
     Dosage: UNK
     Route: 048

REACTIONS (9)
  - Product use in unapproved indication [Unknown]
  - Confusional state [Unknown]
  - Tremor [Unknown]
  - Tachycardia [Unknown]
  - Hyperhidrosis [Unknown]
  - Toxicity to various agents [Unknown]
  - Hyperthermia [Recovered/Resolved]
  - Pyrexia [Unknown]
  - Overdose [Unknown]
